FAERS Safety Report 7973255-4 (Version None)
Quarter: 2011Q4

REPORT INFORMATION
  Report Type: 
  Country: None (occurrence: None)
  Receive Date: 20111213
  Receipt Date: 20111206
  Transmission Date: 20120403
  Serious: Yes (Other)
  Sender: FDA-Public Use
  Company Number: PHHY2011CH107409

PATIENT
  Age: 78 Year
  Sex: Female
  Weight: 55 kg

DRUGS (1)
  1. ZOLEDRONOC ACID [Suspect]
     Indication: OSTEOPOROSIS
     Dosage: 5 MG, UNK
     Dates: start: 20100916

REACTIONS (5)
  - FACIAL PAIN [None]
  - ACUTE PHASE REACTION [None]
  - PAIN IN JAW [None]
  - TRIGEMINAL NEURALGIA [None]
  - MYALGIA [None]
